FAERS Safety Report 6145205-7 (Version None)
Quarter: 2009Q2

REPORT INFORMATION
  Report Type: 
  Country: None (occurrence: None)
  Receive Date: 20090401
  Receipt Date: 20090320
  Transmission Date: 20091009
  Serious: Yes (Hospitalization)
  Sender: FDA-Public Use
  Company Number: 2009-00666

PATIENT
  Age: 69 Year
  Sex: Male

DRUGS (3)
  1. VELCADE [Suspect]
     Indication: MULTIPLE MYELOMA
     Dosage: 2.5 MG, INTRAVENOUS
     Route: 042
     Dates: start: 20090119, end: 20090220
  2. DOXORUBICIN HCL [Suspect]
     Indication: MULTIPLE MYELOMA
     Dosage: 70 MG, INTRAVENOUS
     Route: 042
     Dates: start: 20090119, end: 20090212
  3. DEXAMETHASONE TAB [Suspect]
     Indication: MULTIPLE MYELOMA
     Dosage: 40MG, ORAL
     Route: 048
     Dates: start: 20090119, end: 20090212

REACTIONS (6)
  - CENTRAL LINE INFECTION [None]
  - HERPES ZOSTER OPHTHALMIC [None]
  - LETHARGY [None]
  - LOWER RESPIRATORY TRACT INFECTION [None]
  - PERIORBITAL CELLULITIS [None]
  - UPPER RESPIRATORY TRACT INFECTION [None]
